FAERS Safety Report 8774038 (Version 3)
Quarter: 2013Q3

REPORT INFORMATION
  Report Type: Report from Study
  Country: DE (occurrence: DE)
  Receive Date: 20120907
  Receipt Date: 20130813
  Transmission Date: 20140515
  Serious: Yes (Hospitalization)
  Sender: FDA-Public Use
  Company Number: DE-AMGEN-DEUCT2012056175

PATIENT
  Age: 63 Year
  Sex: Male
  Weight: 80 kg

DRUGS (10)
  1. ETANERCEPT [Suspect]
     Indication: RHEUMATOID ARTHRITIS
     Dosage: 50 MG, 1X WEEKLY
     Route: 058
     Dates: start: 20120119
  2. METHOTREXAT                        /00113801/ [Concomitant]
     Indication: RHEUMATOID ARTHRITIS
     Dosage: 15 MG, 1X WEEKLY
     Route: 058
     Dates: start: 201104
  3. FOLIC ACID [Concomitant]
     Indication: RHEUMATOID ARTHRITIS
     Dosage: 5 MG, 1X WEEKLY
     Route: 048
     Dates: start: 201104
  4. CALCIUM D3 STADA [Concomitant]
     Indication: RHEUMATOID ARTHRITIS
     Dosage: 500 MG, 2X/DAY
     Route: 048
     Dates: start: 201104
  5. PREDNISOLONE [Concomitant]
     Indication: RHEUMATOID ARTHRITIS
     Dosage: 5 MG, 1X/DAY
     Route: 048
     Dates: start: 201104
  6. ASS [Concomitant]
     Indication: CORONARY ARTERY DISEASE
     Dosage: 100 MG, DAILY, SINCE YEARS
  7. BISOPROLOL [Concomitant]
     Indication: HYPERTENSION
     Dosage: 2.5 MG/DAY, SINCE YEARS
  8. RAMIPRIL [Concomitant]
     Dosage: 5 MG/DAY, SINCE YEARS
  9. FALITHROM [Concomitant]
     Indication: ATRIAL FIBRILLATION
     Dosage: ACCORDING TO QUICK, SINCE YEARS
  10. ALLOPURINOL [Concomitant]
     Indication: HYPERURICAEMIA
     Dosage: 150 MG/DAY, SINCE YEARS

REACTIONS (2)
  - Oropharyngeal cancer [Recovered/Resolved]
  - Hypopharyngeal cancer [Recovered/Resolved]
